FAERS Safety Report 9159287 (Version 2)
Quarter: 2016Q2

REPORT INFORMATION
  Report Type: Spontaneous
  Country: US (occurrence: US)
  Receive Date: 20130313
  Receipt Date: 20160504
  Transmission Date: 20160815
  Serious: Yes (Hospitalization)
  Sender: FDA-Public Use
  Company Number: US-RANBAXY-2013US-65927

PATIENT
  Age: 79 Year
  Sex: Female

DRUGS (5)
  1. DONEPEZIL. [Suspect]
     Active Substance: DONEPEZIL
     Indication: DEPRESSION
     Dosage: UNK
     Route: 065
  2. ESZOPICLONE. [Concomitant]
     Active Substance: ESZOPICLONE
     Indication: PRODUCT USED FOR UNKNOWN INDICATION
     Dosage: UNK
     Route: 065
  3. MIRTAZAPINE. [Suspect]
     Active Substance: MIRTAZAPINE
     Indication: DEPRESSION
     Dosage: 45MG/DAY
     Route: 065
  4. MIRTAZAPINE. [Suspect]
     Active Substance: MIRTAZAPINE
     Indication: ANXIETY
  5. DONEPEZIL. [Suspect]
     Active Substance: DONEPEZIL
     Indication: ANXIETY

REACTIONS (1)
  - Encephalopathy [Recovered/Resolved]
